FAERS Safety Report 24946034 (Version 1)
Quarter: 2025Q1

REPORT INFORMATION
  Report Type: Spontaneous
  Country: ES (occurrence: ES)
  Receive Date: 20250209
  Receipt Date: 20250209
  Transmission Date: 20250409
  Serious: Yes (Hospitalization, Other)
  Sender: NOVO NORDISK
  Company Number: ES-NOVOPROD-1362425

PATIENT
  Age: 49 Year
  Sex: Male

DRUGS (5)
  1. NOVOSEVEN [Suspect]
     Active Substance: COAGULATION FACTOR VIIA RECOMBINANT HUMAN
     Indication: Acquired haemophilia
     Dosage: 9 MG/KG, QID
     Dates: end: 20241225
  2. NOVOSEVEN [Suspect]
     Active Substance: COAGULATION FACTOR VIIA RECOMBINANT HUMAN
     Indication: Muscle haemorrhage
  3. PREDNISONE [Concomitant]
     Active Substance: PREDNISONE
     Indication: Muscle haemorrhage
  4. RITUXIMAB [Concomitant]
     Active Substance: RITUXIMAB
     Indication: Muscle haemorrhage
  5. CYCLOPHOSPHAMIDE [Concomitant]
     Active Substance: CYCLOPHOSPHAMIDE
     Indication: Muscle haemorrhage
     Dates: start: 20241206

REACTIONS (1)
  - Pharyngeal haematoma [Recovered/Resolved]

NARRATIVE: CASE EVENT DATE: 20241204
